FAERS Safety Report 15969538 (Version 1)
Quarter: 2019Q1

REPORT INFORMATION
  Report Type: Other
  Country: CA (occurrence: CA)
  Receive Date: 20190215
  Receipt Date: 20190215
  Transmission Date: 20190418
  Serious: Yes (Other)
  Sender: FDA-Public Use
  Company Number: CA-GE HEALTHCARE LIFE SCIENCES-2019CSU000787

PATIENT

DRUGS (2)
  1. OMNIPAQUE [Suspect]
     Active Substance: IOHEXOL
     Indication: PRODUCT USED FOR UNKNOWN INDICATION
  2. OMNIPAQUE [Suspect]
     Active Substance: IOHEXOL
     Indication: COMPUTERISED TOMOGRAM PELVIS
     Dosage: 1 DF, SINGLE
     Route: 065

REACTIONS (5)
  - Throat irritation [Recovered/Resolved]
  - Sneezing [Recovered/Resolved]
  - Cough [Recovered/Resolved]
  - Dry throat [Recovered/Resolved]
  - Nasal congestion [Recovered/Resolved]
